FAERS Safety Report 4479946-4 (Version None)
Quarter: 2004Q3

REPORT INFORMATION
  Report Type: 
  Country: None (occurrence: None)
  Receive Date: 20040923
  Receipt Date: 20040528
  Transmission Date: 20050211
  Serious: No
  Sender: FDA-Public Use
  Company Number: USA040668875

PATIENT
  Sex: Female

DRUGS (2)
  1. FORTEO [Suspect]
     Indication: OSTEOPOROSIS
     Dates: start: 20040428
  2. EVISTA [Suspect]
     Indication: OSTEOPOROSIS

REACTIONS (2)
  - INJECTION SITE HAEMORRHAGE [None]
  - MUSCLE CRAMP [None]
